FAERS Safety Report 7132429-5 (Version None)
Quarter: 2010Q4

REPORT INFORMATION
  Report Type: 
  Country: None (occurrence: None)
  Receive Date: 20101202
  Receipt Date: 20101124
  Transmission Date: 20110411
  Serious: Yes (Hospitalization)
  Sender: FDA-Public Use
  Company Number: AU-AMGEN-AUSSP2010006250

PATIENT

DRUGS (2)
  1. ARANESP [Suspect]
     Indication: PRODUCT USED FOR UNKNOWN INDICATION
  2. EPREX [Suspect]
     Dosage: UNK UNK, Q2WK
     Dates: start: 20090121, end: 20090130

REACTIONS (4)
  - ANTI-ERYTHROPOIETIN ANTIBODY NEGATIVE [None]
  - APLASIA PURE RED CELL [None]
  - DIALYSIS [None]
  - MALAISE [None]
